FAERS Safety Report 15336930 (Version 2)
Quarter: 2019Q3

REPORT INFORMATION
  Report Type: Spontaneous
  Country: US (occurrence: US)
  Receive Date: 20180831
  Receipt Date: 20190903
  Transmission Date: 20191004
  Serious: No
  Sender: FDA-Public Use
  Company Number: US-LUPIN PHARMACEUTICALS INC.-2018-05030

PATIENT
  Age: 71 Year
  Sex: Female
  Weight: 58.96 kg

DRUGS (1)
  1. AMLODIPINE BESYLATE TABLETS USP, 10 MG [Suspect]
     Active Substance: AMLODIPINE BESYLATE
     Indication: HYPERTENSION
     Dosage: 10 MG, QD
     Route: 048
     Dates: start: 20180619

REACTIONS (6)
  - Throat irritation [Recovered/Resolved]
  - Cough [Recovered/Resolved]
  - Pharyngeal erythema [Recovered/Resolved]
  - Throat tightness [Recovered/Resolved]
  - Product use complaint [Unknown]
  - Product solubility abnormal [Unknown]

NARRATIVE: CASE EVENT DATE: 20180619
